FAERS Safety Report 8053436-4 (Version None)
Quarter: 2012Q1

REPORT INFORMATION
  Report Type: 
  Country: None (occurrence: None)
  Receive Date: 20120118
  Receipt Date: 20120113
  Transmission Date: 20120608
  Serious: Yes (Life-Threatening, Hospitalization)
  Sender: FDA-Public Use
  Company Number: US-GLAXOSMITHKLINE-A0961782A

PATIENT
  Age: 70 Year
  Sex: Male
  Weight: 100.5 kg

DRUGS (15)
  1. LUPRON [Concomitant]
  2. AMLODIPINE [Concomitant]
     Dosage: 5MG PER DAY
  3. FLOMAX [Concomitant]
     Dosage: .4MG PER DAY
  4. VITAMIN D [Concomitant]
     Dosage: 800UNIT PER DAY
  5. MELATONIN [Concomitant]
     Dosage: 3MG PER DAY
  6. PAZOPANIB [Suspect]
     Indication: PROSTATE CANCER
     Dosage: 200MG PER DAY
     Dates: start: 20110914
  7. CALCIUM [Concomitant]
     Dosage: 1500MG PER DAY
  8. PREDNISONE TAB [Suspect]
     Dosage: 5MG TWICE PER DAY
  9. BENICAR [Concomitant]
     Dosage: 40MG PER DAY
  10. MULTI-VITAMIN [Concomitant]
  11. DECADRON [Concomitant]
  12. IMODIUM [Concomitant]
  13. DOCETAXEL [Suspect]
     Indication: PROSTATE CANCER
     Dates: start: 20110913
  14. XGEVA [Concomitant]
  15. ZOFRAN [Concomitant]
     Dosage: 8MG AS REQUIRED

REACTIONS (1)
  - SEPSIS [None]
